FAERS Safety Report 9211079 (Version 1)
Quarter: 2013Q2

REPORT INFORMATION
  Report Type: Report from Study
  Country: US (occurrence: US)
  Receive Date: 20130404
  Receipt Date: 20130404
  Transmission Date: 20140414
  Serious: Yes (Other)
  Sender: FDA-Public Use
  Company Number: US-AMGEN-US335168

PATIENT
  Age: 80 Year
  Sex: Male

DRUGS (8)
  1. DENOSUMAB [Suspect]
     Indication: PROSTATE CANCER
     Dosage: UNK UNK, QMO
     Route: 058
     Dates: start: 20060912, end: 20070717
  2. LEUPRORELIN ACETATE [Concomitant]
     Dosage: 30 MG, Q4MO
     Route: 030
     Dates: start: 20021108
  3. ATORVASTATIN CALCIUM [Concomitant]
     Dosage: 10 MG, QD
     Route: 048
     Dates: start: 2001
  4. TRIAMTERENE/HYDROCHLOROTHIAZIDE [Concomitant]
     Dosage: 50 MG, QD
     Route: 048
     Dates: start: 2001
  5. ATENOLOL [Concomitant]
     Dosage: 25 MG, QD
     Route: 048
     Dates: start: 2001
  6. LISINOPRIL [Concomitant]
     Dosage: 20 MG, QD
     Route: 048
     Dates: start: 2001
  7. PIOGLITAZONE HCL [Concomitant]
     Dosage: 15 MG, QD
     Route: 048
     Dates: start: 200603
  8. IRON [Concomitant]
     Dosage: 27 MG, QD
     Route: 048
     Dates: start: 2004

REACTIONS (1)
  - Osteomyelitis acute [Recovered/Resolved]
